FAERS Safety Report 14056489 (Version 3)
Quarter: 2019Q1

REPORT INFORMATION
  Report Type: Report from Study
  Country: JP (occurrence: JP)
  Receive Date: 20171006
  Receipt Date: 20190125
  Transmission Date: 20190417
  Serious: Yes (Life-Threatening, Hospitalization, Other)
  Sender: FDA-Public Use
  Company Number: JP-ACTELION-A-CH2016-144224

PATIENT
  Age: 63 Year
  Sex: Male

DRUGS (18)
  1. PIARLE [Concomitant]
  2. CARTIN [Concomitant]
  3. DAIKENCHUTO [Concomitant]
     Active Substance: HERBALS
  4. LASIX [Concomitant]
     Active Substance: FUROSEMIDE
     Indication: PRODUCT USED FOR UNKNOWN INDICATION
  5. GASTER [Concomitant]
     Active Substance: FAMOTIDINE
     Indication: PRODUCT USED FOR UNKNOWN INDICATION
  6. TAKECAB [Concomitant]
     Active Substance: VONOPRAZAN FUMURATE
  7. LIVACT [Concomitant]
     Active Substance: AMINO ACIDS
  8. AZOSEMIDE [Concomitant]
     Active Substance: AZOSEMIDE
  9. REVATIO [Concomitant]
     Active Substance: SILDENAFIL CITRATE
     Indication: PRODUCT USED FOR UNKNOWN INDICATION
  10. CARBOCISTEINE [Concomitant]
     Active Substance: CARBOCYSTEINE
     Indication: PRODUCT USED FOR UNKNOWN INDICATION
  11. BELSOMRA [Concomitant]
     Active Substance: SUVOREXANT
  12. ALDACTONE [Concomitant]
     Active Substance: SPIRONOLACTONE
     Indication: PRODUCT USED FOR UNKNOWN INDICATION
  13. OPSUMIT [Suspect]
     Active Substance: MACITENTAN
     Indication: PULMONARY ARTERIAL HYPERTENSION
     Dosage: 10 MG, OD
     Route: 048
     Dates: start: 20160614
  14. PURSENNIDE [Concomitant]
     Indication: PRODUCT USED FOR UNKNOWN INDICATION
  15. RISPERIDONE. [Concomitant]
     Active Substance: RISPERIDONE
  16. ROZEREM [Concomitant]
     Active Substance: RAMELTEON
  17. URSO [Concomitant]
     Active Substance: URSODIOL
     Indication: PRODUCT USED FOR UNKNOWN INDICATION
  18. MAGNESIUM OXIDE. [Concomitant]
     Active Substance: MAGNESIUM OXIDE

REACTIONS (9)
  - Subdural haematoma evacuation [Unknown]
  - Haemoglobin decreased [Recovered/Resolved]
  - Subdural haematoma [Recovered/Resolved]
  - Red blood cell count decreased [Recovered/Resolved]
  - Haematocrit decreased [Recovered/Resolved]
  - Depressed level of consciousness [Recovering/Resolving]
  - Hepatic encephalopathy [Recovering/Resolving]
  - Malaise [Recovering/Resolving]
  - Anaemia [Recovered/Resolved]

NARRATIVE: CASE EVENT DATE: 20160721
